FAERS Safety Report 15993477 (Version 2)
Quarter: 2019Q1

REPORT INFORMATION
  Report Type: Spontaneous
  Country: US (occurrence: US)
  Receive Date: 20190222
  Receipt Date: 20190308
  Transmission Date: 20190418
  Serious: Yes (Hospitalization)
  Sender: FDA-Public Use
  Company Number: US-009507513-1902USA007130

PATIENT
  Age: 58 Year
  Sex: Female
  Weight: 83.91 kg

DRUGS (12)
  1. MORPHINE IR [Concomitant]
     Active Substance: MORPHINE
     Indication: PAIN
     Dosage: 15 MG TABLET TWICE A DAY AS NEEDED
     Route: 048
  2. PRINIVIL [Suspect]
     Active Substance: LISINOPRIL
     Indication: BLOOD PRESSURE ABNORMAL
     Dosage: 10 MG ONE TABLET DAILY
     Route: 048
     Dates: start: 2018
  3. LYRICA [Suspect]
     Active Substance: PREGABALIN
     Indication: FIBROMYALGIA
     Dosage: 50 MG CAPSULE THREE TIMES A DAY
     Route: 048
  4. LYRICA [Suspect]
     Active Substance: PREGABALIN
     Indication: PAIN IN EXTREMITY
  5. ASPIRIN. [Concomitant]
     Active Substance: ASPIRIN
     Dosage: 81 MG, TABLET EVERYDAY
     Route: 048
  6. METHOCARBAMOL. [Concomitant]
     Active Substance: METHOCARBAMOL
     Dosage: 500 MG ONE TABLET BY MOUTH THREE TIMES A DAY
     Route: 048
  7. TRAZODONE HYDROCHLORIDE. [Concomitant]
     Active Substance: TRAZODONE HYDROCHLORIDE
     Dosage: 50 MG ONE TABLET AT BEDTIME
     Route: 048
  8. HYDROCHLOROT [Concomitant]
     Active Substance: HYDROCHLOROTHIAZIDE
     Indication: FLUID RETENTION
     Dosage: 12.5 MG CAPSULE ONCE A DAY
     Route: 048
  9. ESCITALOPRAM [Concomitant]
     Active Substance: ESCITALOPRAM OXALATE
     Indication: DEPRESSION
     Dosage: 10 MG, 1.5 TABLETS ONCE DAILY
     Route: 048
     Dates: start: 2017
  10. LYRICA [Suspect]
     Active Substance: PREGABALIN
     Indication: NEUROPATHY PERIPHERAL
     Dosage: UNK
  11. PANTOPRAZOLE [Concomitant]
     Active Substance: PANTOPRAZOLE
     Indication: DYSPEPSIA
     Dosage: 40 MG TABLET ONCE A DAY
     Route: 048
  12. MORPHINE [Concomitant]
     Active Substance: MORPHINE
     Indication: PAIN
     Dosage: 30 MG EXTENDED RELEASE 3 TIMES A DAY
     Route: 048

REACTIONS (10)
  - Gastric disorder [Unknown]
  - Chest discomfort [Unknown]
  - Malaise [Unknown]
  - Chest pain [Recovering/Resolving]
  - Peripheral swelling [Unknown]
  - Middle insomnia [Unknown]
  - Musculoskeletal chest pain [Unknown]
  - Bone pain [Unknown]
  - Musculoskeletal pain [Unknown]
  - Tremor [Unknown]

NARRATIVE: CASE EVENT DATE: 201803
